FAERS Safety Report 4555018-5 (Version None)
Quarter: 2004Q4

REPORT INFORMATION
  Report Type: 
  Country: None (occurrence: None)
  Receive Date: 20041217
  Receipt Date: 20040810
  Transmission Date: 20050328
  Serious: No
  Sender: FDA-Public Use
  Company Number: 2004-BP-06144BP

PATIENT
  Age: 61 Year
  Sex: Male
  Weight: 132.9 kg

DRUGS (8)
  1. SPIRIVA [Suspect]
     Indication: CHRONIC OBSTRUCTIVE AIRWAYS DISEASE
     Dosage: 18 MCG (18 MCG), IH
     Route: 055
     Dates: start: 20040707
  2. ADVAIR (SERETIDE MITE) [Concomitant]
  3. PAXIL [Concomitant]
  4. LIPITOR [Concomitant]
  5. CELEBREX [Concomitant]
  6. INSULIN [Concomitant]
  7. PROTONIX [Concomitant]
  8. SINGULAIR [Concomitant]

REACTIONS (1)
  - COUGH [None]
